FAERS Safety Report 20841066 (Version 1)
Quarter: 2022Q2

REPORT INFORMATION
  Report Type: Spontaneous
  Country: US (occurrence: US)
  Receive Date: 20220517
  Receipt Date: 20220517
  Transmission Date: 20220721
  Serious: No
  Sender: FDA-Public Use
  Company Number: US-PFIZER INC-202200490151

PATIENT
  Age: 91 Year
  Sex: Male
  Weight: 72.57 kg

DRUGS (14)
  1. DOXYCYCLINE HYCLATE [Suspect]
     Active Substance: DOXYCYCLINE HYCLATE
     Indication: Respiratory tract infection
     Dosage: 100 MG, 2X/DAY
     Route: 048
     Dates: start: 20220319, end: 20220323
  2. DOXYCYCLINE HYCLATE [Suspect]
     Active Substance: DOXYCYCLINE HYCLATE
     Indication: Cough
     Dosage: UNK
  3. MEMANTINE [Concomitant]
     Active Substance: MEMANTINE
     Dosage: UNK
  4. DONEPEZIL HYDROCHLORIDE [Concomitant]
     Active Substance: DONEPEZIL HYDROCHLORIDE
     Dosage: UNK
  5. THERAPEUTIC M [Concomitant]
     Dosage: UNK
  6. CALCIUM WITH D3 [Concomitant]
     Dosage: UNK
  7. ELIQUIS [Concomitant]
     Active Substance: APIXABAN
     Dosage: UNK
  8. SERTRALINE [Concomitant]
     Active Substance: SERTRALINE HYDROCHLORIDE
     Dosage: UNK
  9. LEVOTHYROXINE [Concomitant]
     Active Substance: LEVOTHYROXINE
     Dosage: UNK
  10. DIGOXIN [Concomitant]
     Active Substance: DIGOXIN
     Dosage: UNK
  11. HYDROCHLOROTHIAZIDE [Concomitant]
     Active Substance: HYDROCHLOROTHIAZIDE
     Dosage: UNK
  12. YUPELRI [Concomitant]
     Active Substance: REVEFENACIN
     Dosage: UNK
  13. FORMOTEROL FUMARATE [Concomitant]
     Active Substance: FORMOTEROL FUMARATE
     Dosage: UNK
  14. PROLIA [Concomitant]
     Active Substance: DENOSUMAB
     Dosage: UNK

REACTIONS (3)
  - Drug effective for unapproved indication [Unknown]
  - Memory impairment [Unknown]
  - Therapeutic response unexpected [Unknown]
